FAERS Safety Report 17555269 (Version 1)
Quarter: 2020Q1

REPORT INFORMATION
  Report Type: Spontaneous
  Country: GB (occurrence: GB)
  Receive Date: 20200318
  Receipt Date: 20200318
  Transmission Date: 20200409
  Serious: Yes (Other)
  Sender: FDA-Public Use
  Company Number: GB-GLAXOSMITHKLINE-GB2020044054

PATIENT
  Age: 22 Year
  Sex: Female
  Weight: 117.02 kg

DRUGS (1)
  1. ORLISTAT. [Suspect]
     Active Substance: ORLISTAT
     Indication: WEIGHT LOSS POOR
     Dosage: UNK
     Route: 048
     Dates: start: 20200110, end: 20200226

REACTIONS (3)
  - Rectal haemorrhage [Not Recovered/Not Resolved]
  - Back pain [Unknown]
  - Abdominal pain upper [Unknown]

NARRATIVE: CASE EVENT DATE: 2020
